FAERS Safety Report 23851413 (Version 1)
Quarter: 2024Q2

REPORT INFORMATION
  Report Type: Spontaneous
  Country: CN (occurrence: CN)
  Receive Date: 20240514
  Receipt Date: 20240514
  Transmission Date: 20240715
  Serious: Yes (Hospitalization, Other)
  Sender: FDA-Public Use
  Company Number: CN-China IPSEN SC-2024-00439

PATIENT
  Age: 25 Year
  Sex: Female

DRUGS (1)
  1. BOTULINUM TOXIN TYPE A [Suspect]
     Active Substance: BOTULINUM TOXIN TYPE A
     Indication: Muscle hypertrophy
     Dosage: TIME INTERVAL: AS NECESSARY
     Route: 030

REACTIONS (1)
  - Mycobacterium abscessus infection [Recovered/Resolved]
